FAERS Safety Report 12633413 (Version 2)
Quarter: 2016Q3

REPORT INFORMATION
  Report Type: Spontaneous
  Country: US (occurrence: US)
  Receive Date: 20160808
  Receipt Date: 20160808
  Transmission Date: 20161109
  Serious: No
  Sender: FDA-Public Use
  Company Number: US-BEH-2016060730

PATIENT
  Sex: Male
  Weight: 38 kg

DRUGS (8)
  1. EPIPEN [Concomitant]
     Active Substance: EPINEPHRINE
  2. L-M-X [Concomitant]
  3. DIPHENHYDRAMINE. [Concomitant]
     Active Substance: DIPHENHYDRAMINE
  4. SINGULAIR [Concomitant]
     Active Substance: MONTELUKAST SODIUM
  5. AMOXICILLIN. [Concomitant]
     Active Substance: AMOXICILLIN
  6. CEPHALEXIN. [Concomitant]
     Active Substance: CEPHALEXIN
  7. ROCEPHIN [Concomitant]
     Active Substance: CEFTRIAXONE SODIUM
  8. HIZENTRA [Suspect]
     Active Substance: HUMAN IMMUNOGLOBULIN G
     Indication: HUMORAL IMMUNE DEFECT
     Route: 058

REACTIONS (1)
  - Ear infection [Unknown]
